FAERS Safety Report 9965538 (Version 1)
Quarter: 2014Q1

REPORT INFORMATION
  Report Type: Report from Study
  Country: US (occurrence: US)
  Receive Date: 20140305
  Receipt Date: 20140305
  Transmission Date: 20141002
  Serious: No
  Sender: FDA-Public Use
  Company Number: US-ABBVIE-13P-163-1126924-00

PATIENT
  Age: 46 Year
  Sex: Female
  Weight: 72.64 kg

DRUGS (1)
  1. HUMIRA [Suspect]
     Indication: PSORIATIC ARTHROPATHY
     Route: 058
     Dates: start: 201301

REACTIONS (9)
  - Burning sensation [Unknown]
  - Lung infection [Unknown]
  - Chest discomfort [Unknown]
  - Muscle strain [Unknown]
  - Cough [Unknown]
  - Oropharyngeal pain [Unknown]
  - Arthropod bite [Unknown]
  - Local swelling [Recovering/Resolving]
  - Infected bites [Recovering/Resolving]
